FAERS Safety Report 5123155-2 (Version None)
Quarter: 2006Q4

REPORT INFORMATION
  Report Type: 
  Country: None (occurrence: None)
  Receive Date: 20061009
  Receipt Date: 20060919
  Transmission Date: 20070319
  Serious: Yes (Hospitalization)
  Sender: FDA-Public Use
  Company Number: DE-PURDUE-DEU_2006_0002480

PATIENT
  Age: 51 Year
  Sex: Female
  Weight: 96 kg

DRUGS (9)
  1. OXY/NALOXONE VS OXY/PLACEBO CR TAB [Suspect]
     Indication: BACK PAIN
     Dosage: 20 MG, DAILY
     Route: 048
     Dates: start: 20060906, end: 20060906
  2. OXY/NALOXONE VS OXY/PLACEBO CR TAB [Suspect]
     Dosage: 50 MG, DAILY
     Route: 048
     Dates: start: 20060907, end: 20060923
  3. OXY/NALOXONE VS OXY/PLACEBO CR TAB [Suspect]
     Dosage: 30 MG, DAILY
     Route: 048
     Dates: start: 20060924, end: 20060924
  4. ARCOXIA [Suspect]
     Indication: POLYARTHRITIS
     Route: 048
     Dates: start: 20060601, end: 20060921
  5. TETRAZEPAM [Concomitant]
  6. RAMIPRIL [Concomitant]
  7. HYDROCHLOROTHIAZDE TAB [Concomitant]
  8. MOVICOL [Concomitant]
     Indication: CONSTIPATION
  9. BISACODYL [Concomitant]
     Indication: CONSTIPATION

REACTIONS (2)
  - COLITIS [None]
  - GASTROINTESTINAL HAEMORRHAGE [None]
